FAERS Safety Report 6853335-7 (Version None)
Quarter: 2010Q3

REPORT INFORMATION
  Report Type: 
  Country: None (occurrence: None)
  Receive Date: 20100717
  Receipt Date: 20071203
  Transmission Date: 20110219
  Serious: No
  Sender: FDA-Public Use
  Company Number: US-PFIZER INC-2007104108

PATIENT
  Sex: Female
  Weight: 73.5 kg

DRUGS (10)
  1. CHANTIX [Suspect]
     Indication: SMOKING CESSATION THERAPY
     Dates: start: 20071201
  2. ZOLOFT [Suspect]
     Indication: DEPRESSION
     Dates: start: 20070101, end: 20070101
  3. ZOCOR [Concomitant]
  4. OXYGEN [Concomitant]
     Indication: CHRONIC OBSTRUCTIVE PULMONARY DISEASE
  5. AMBIEN [Concomitant]
     Indication: SLEEP DISORDER
  6. LORTAB [Concomitant]
     Indication: ARTHRITIS
  7. LORTAB [Concomitant]
     Indication: BACK PAIN
  8. TOPROL-XL [Concomitant]
     Indication: HYPERTENSION
  9. TOPROL-XL [Concomitant]
     Indication: CARDIAC DISORDER
  10. NORVASC [Concomitant]
     Indication: HYPERTENSION

REACTIONS (1)
  - NAUSEA [None]
